FAERS Safety Report 24308558 (Version 1)
Quarter: 2024Q3

REPORT INFORMATION
  Report Type: Spontaneous
  Country: US (occurrence: US)
  Receive Date: 20240911
  Receipt Date: 20240911
  Transmission Date: 20241017
  Serious: No
  Sender: INCYTE
  Company Number: US-INCYTE CORPORATION-2024IN009218

PATIENT

DRUGS (1)
  1. OPZELURA [Suspect]
     Active Substance: RUXOLITINIB PHOSPHATE
     Dosage: 1.5 PERCENT, 60 GM, BID (APPLY A THIN LAYER TO AFFECTED AREA(S) OF ECZEMA TWICE DAILY FOR MAINTENANC
     Route: 061
     Dates: start: 202401

REACTIONS (1)
  - Dehydration [Unknown]
